FAERS Safety Report 6405438-9 (Version None)
Quarter: 2009Q4

REPORT INFORMATION
  Report Type: 
  Country: None (occurrence: None)
  Receive Date: 20091016
  Receipt Date: 20091016
  Transmission Date: 20100525
  Serious: Yes (Life-Threatening, Hospitalization)
  Sender: FDA-Public Use
  Company Number: None

PATIENT
  Age: 56 Year
  Sex: Female
  Weight: 58.9676 kg

DRUGS (2)
  1. METHOCARBAMOL [Suspect]
     Indication: MUSCLE SPASMS
     Dosage: 750 MG 1 TO 2 TAB Q 6 HR PO
     Route: 048
     Dates: start: 20091001
  2. METOCLOPRAMIDE [Suspect]
     Indication: NAUSEA
     Dosage: 5 MG 1 TO 2 TAB AS NEEDED PO
     Route: 048
     Dates: start: 20091001

REACTIONS (5)
  - DYSKINESIA [None]
  - MUSCLE CONTRACTURE [None]
  - MUSCLE RIGIDITY [None]
  - MUSCLE SPASMS [None]
  - NECK PAIN [None]
